FAERS Safety Report 5844758-3 (Version None)
Quarter: 2008Q3

REPORT INFORMATION
  Report Type: 
  Country: None (occurrence: None)
  Receive Date: 20080814
  Receipt Date: 20080312
  Transmission Date: 20090109
  Serious: Yes (Other)
  Sender: FDA-Public Use
  Company Number: FR-JNJFOC-20080802771

PATIENT
  Age: 41 Year
  Sex: Male

DRUGS (3)
  1. IXPRIM [Suspect]
     Route: 048
  2. IXPRIM [Suspect]
     Route: 048
  3. IXPRIM [Suspect]
     Indication: DRUG USE FOR UNKNOWN INDICATION
     Route: 048

REACTIONS (1)
  - ULCERATIVE KERATITIS [None]
